FAERS Safety Report 10867308 (Version 1)
Quarter: 2015Q1

REPORT INFORMATION
  Report Type: Report from Study
  Country: IN (occurrence: IN)
  Receive Date: 20150225
  Receipt Date: 20150225
  Transmission Date: 20150721
  Serious: Yes (Death)
  Sender: FDA-Public Use
  Company Number: PHHY2015IN022007

PATIENT
  Age: 72 Year
  Sex: Male

DRUGS (1)
  1. EXELON PATCH [Suspect]
     Active Substance: RIVASTIGMINE
     Indication: DEMENTIA ALZHEIMER^S TYPE
     Dosage: 4.6 MG/24 HOURS (PATCH 5 CM2 DAILY)
     Route: 062
     Dates: start: 20141130, end: 20150110

REACTIONS (1)
  - Death [Fatal]
